FAERS Safety Report 6727082-6 (Version None)
Quarter: 2010Q2

REPORT INFORMATION
  Report Type: 
  Country: None (occurrence: None)
  Receive Date: 20100517
  Receipt Date: 20100423
  Transmission Date: 20101027
  Serious: No
  Sender: FDA-Public Use
  Company Number: US-BAYER-201020311NA

PATIENT
  Sex: Female

DRUGS (1)
  1. MIRENA [Suspect]
     Indication: INTRA-UTERINE CONTRACEPTIVE DEVICE
     Dosage: FREQUENCY: CONTINUOUS
     Route: 015
     Dates: start: 20050101

REACTIONS (2)
  - DEVICE BREAKAGE [None]
  - DEVICE EXPULSION [None]
